FAERS Safety Report 6406888-7 (Version None)
Quarter: 2009Q4

REPORT INFORMATION
  Report Type: 
  Country: None (occurrence: None)
  Receive Date: 20091015
  Receipt Date: 20051018
  Transmission Date: 20100525
  Serious: Yes (Hospitalization)
  Sender: FDA-Public Use
  Company Number: 2009009261

PATIENT
  Age: 75 Year
  Sex: Female
  Weight: 74.8435 kg

DRUGS (2)
  1. ACTIQ [Suspect]
     Dosage: 200 MCG, BU
     Route: 002
  2. DILAUDID [Concomitant]

REACTIONS (1)
  - URINARY TRACT INFECTION [None]
